FAERS Safety Report 7410849-9 (Version None)
Quarter: 2011Q2

REPORT INFORMATION
  Report Type: 
  Country: None (occurrence: None)
  Receive Date: 20110413
  Receipt Date: 20110407
  Transmission Date: 20111010
  Serious: No
  Sender: FDA-Public Use
  Company Number: US-PFIZER INC-2011077583

PATIENT
  Sex: Male
  Weight: 69 kg

DRUGS (2)
  1. PAROXETINE [Concomitant]
     Dosage: 20 MG, UNK
  2. LYRICA [Suspect]
     Indication: NERVE INJURY
     Dosage: 75 MG, 1X/DAY
     Route: 048
     Dates: start: 20110301, end: 20110407

REACTIONS (1)
  - TREMOR [None]
